FAERS Safety Report 9305350 (Version 1)
Quarter: 2013Q2

REPORT INFORMATION
  Report Type: Spontaneous
  Country: US (occurrence: US)
  Receive Date: 20130523
  Receipt Date: 20130523
  Transmission Date: 20140414
  Serious: Yes (Other)
  Sender: FDA-Public Use
  Company Number: US-PFIZER INC-2013157162

PATIENT
  Age: 60 Year
  Sex: Male
  Weight: 116 kg

DRUGS (9)
  1. NEURONTIN [Suspect]
     Indication: BACK DISORDER
     Dosage: 300 MG, 2X/DAY
     Dates: start: 201304, end: 201305
  2. NEURONTIN [Suspect]
     Indication: HYPOAESTHESIA
     Dosage: 300 MG, 1X/DAY
     Dates: start: 201305
  3. NEURONTIN [Suspect]
     Indication: NERVE BLOCK
  4. EFFEXOR XR [Suspect]
     Indication: DEPRESSION
     Dosage: 75MG DAILY
     Dates: start: 20130402
  5. CYMBALTA [Suspect]
     Indication: DEPRESSION
     Dosage: 30 MG, UNK
     Dates: start: 201302, end: 2013
  6. CYMBALTA [Suspect]
     Indication: BACK PAIN
  7. FLEXERIL [Suspect]
     Dosage: UNK
  8. LIPITOR [Concomitant]
     Dosage: UNK
  9. CELEBREX [Concomitant]
     Indication: BACK PAIN
     Dosage: 200MG DAILY
     Dates: start: 2013

REACTIONS (8)
  - Impaired work ability [Unknown]
  - Feeling abnormal [Unknown]
  - Fatigue [Unknown]
  - Somnolence [Unknown]
  - Asthenopia [Unknown]
  - Pain in jaw [Unknown]
  - Muscle tightness [Unknown]
  - Intentional drug misuse [Unknown]
